FAERS Safety Report 8588848-3 (Version None)
Quarter: 2012Q3

REPORT INFORMATION
  Report Type: 
  Country: None (occurrence: None)
  Receive Date: 20120813
  Receipt Date: 20120802
  Transmission Date: 20120928
  Serious: Yes (Hospitalization)
  Sender: FDA-Public Use
  Company Number: US-BRISTOL-MYERS SQUIBB COMPANY-16651515

PATIENT
  Age: 39 Year
  Sex: Male
  Weight: 77 kg

DRUGS (3)
  1. NORVIR [Concomitant]
  2. REYATAZ [Suspect]
     Indication: HIV INFECTION
     Dosage: INTERRUPTED IN MAY2012 AND RESTARTED A WEEK AGO
     Dates: start: 20100101
  3. TRUVADA [Concomitant]

REACTIONS (3)
  - ANGIOEDEMA [None]
  - HEADACHE [None]
  - WEIGHT INCREASED [None]
